FAERS Safety Report 12383087 (Version 5)
Quarter: 2016Q3

REPORT INFORMATION
  Report Type: Spontaneous
  Country: US (occurrence: US)
  Receive Date: 20160518
  Receipt Date: 20160728
  Transmission Date: 20161109
  Serious: No
  Sender: FDA-Public Use
  Company Number: US-ACTELION-A-US2016-136093

PATIENT
  Age: 73 Year
  Sex: Female
  Weight: 52.61 kg

DRUGS (7)
  1. UPTRAVI [Suspect]
     Active Substance: SELEXIPAG
     Dosage: 800 MCG, BID
     Route: 048
     Dates: start: 20160526
  2. UPTRAVI [Suspect]
     Active Substance: SELEXIPAG
     Dosage: 600 MCG, BID
     Route: 048
  3. SILDENAFIL. [Concomitant]
     Active Substance: SILDENAFIL
  4. VENTAVIS [Suspect]
     Active Substance: ILOPROST
     Indication: PULMONARY ARTERIAL HYPERTENSION
     Dosage: 2.5 MCG, 6 - 8 X DAILY
     Route: 055
     Dates: start: 20151125
  5. UPTRAVI [Suspect]
     Active Substance: SELEXIPAG
     Indication: PULMONARY ARTERIAL HYPERTENSION
     Dosage: 200 MCG, BID
     Route: 048
     Dates: start: 20160429
  6. UPTRAVI [Suspect]
     Active Substance: SELEXIPAG
     Dosage: 400 MCG, BID
     Route: 048
  7. VENTAVIS [Suspect]
     Active Substance: ILOPROST
     Dosage: 5 MCG, QID
     Route: 055

REACTIONS (12)
  - Insomnia [Unknown]
  - Chills [Unknown]
  - Influenza like illness [Unknown]
  - Diarrhoea [Recovering/Resolving]
  - Pain [Unknown]
  - Arthralgia [Unknown]
  - Chest pain [Unknown]
  - Pain in extremity [Recovering/Resolving]
  - Arthritis [Unknown]
  - Headache [Unknown]
  - Muscle spasms [Unknown]
  - Myalgia [Recovering/Resolving]
